FAERS Safety Report 17752194 (Version 1)
Quarter: 2020Q2

REPORT INFORMATION
  Report Type: Spontaneous
  Country: ES (occurrence: ES)
  Receive Date: 20200506
  Receipt Date: 20200506
  Transmission Date: 20200714
  Serious: Yes (Other)
  Sender: FDA-Public Use
  Company Number: ES-MYLANLABS-2020M1001991

PATIENT
  Age: 100 Year
  Sex: Female

DRUGS (2)
  1. FUROSEMIDE. [Suspect]
     Active Substance: FUROSEMIDE
     Indication: CARDIAC FAILURE
     Dosage: 40 MILLIGRAM, QD
     Route: 048
     Dates: start: 201908, end: 20190902
  2. DIGOXINA [Suspect]
     Active Substance: DIGOXIN
     Indication: PRODUCT USED FOR UNKNOWN INDICATION
     Dosage: 500 MICROGRAM, QD
     Route: 048
     Dates: start: 201908, end: 20190902

REACTIONS (5)
  - Condition aggravated [Recovered/Resolved]
  - Toxicity to various agents [Recovered/Resolved]
  - Wrong product administered [Recovered/Resolved]
  - Incorrect dosage administered [Recovered/Resolved]
  - Cardiac failure [Recovered/Resolved]

NARRATIVE: CASE EVENT DATE: 201908
